FAERS Safety Report 7792171-4 (Version None)
Quarter: 2011Q4

REPORT INFORMATION
  Report Type: 
  Country: None (occurrence: None)
  Receive Date: 20111003
  Receipt Date: 20111003
  Transmission Date: 20120403
  Serious: Yes (Life-Threatening, Hospitalization)
  Sender: FDA-Public Use
  Company Number: None

PATIENT
  Age: 54 Year
  Sex: Female
  Weight: 79.378 kg

DRUGS (1)
  1. ROPINIROLE [Suspect]
     Indication: RESTLESSNESS
     Dosage: 4 TABS BEFORE BEDTIME
     Route: 048
     Dates: start: 20100610, end: 20110930

REACTIONS (7)
  - INTERVERTEBRAL DISC PROTRUSION [None]
  - LOSS OF CONSCIOUSNESS [None]
  - HEADACHE [None]
  - ROAD TRAFFIC ACCIDENT [None]
  - VISUAL IMPAIRMENT [None]
  - SPINAL FUSION SURGERY [None]
  - RADICULOPATHY [None]
